FAERS Safety Report 6814045-5 (Version None)
Quarter: 2010Q3

REPORT INFORMATION
  Report Type: 
  Country: None (occurrence: None)
  Receive Date: 20100702
  Receipt Date: 20100625
  Transmission Date: 20110219
  Serious: Yes (Hospitalization)
  Sender: FDA-Public Use
  Company Number: US-ABBOTT-10P-163-0653603-00

PATIENT
  Sex: Female

DRUGS (5)
  1. GENGRAF [Suspect]
     Indication: PSORIASIS
     Route: 048
     Dates: start: 20070101, end: 20070101
  2. GENGRAF [Suspect]
     Route: 048
     Dates: start: 20090101, end: 20090101
  3. GENGRAF [Suspect]
     Dosage: DOSE LOWERED
     Route: 048
     Dates: start: 20090101, end: 20090101
  4. GENGRAF [Suspect]
     Dosage: DOSE INCREASED
     Route: 048
     Dates: start: 20090101
  5. LIPITOR [Concomitant]
     Indication: BLOOD CHOLESTEROL INCREASED
     Dosage: DAILY

REACTIONS (6)
  - DRUG INEFFECTIVE [None]
  - HEART RATE INCREASED [None]
  - HYPERTENSION [None]
  - LUNG INFECTION [None]
  - LUNG NEOPLASM [None]
  - PSORIASIS [None]
